FAERS Safety Report 11132607 (Version 1)
Quarter: 2015Q2

REPORT INFORMATION
  Report Type: Report from Study
  Country: US (occurrence: US)
  Receive Date: 20150522
  Receipt Date: 20150522
  Transmission Date: 20150821
  Serious: Yes (Other)
  Sender: FDA-Public Use
  Company Number: US-SA-2015SA067192

PATIENT
  Age: 56 Year
  Sex: Male

DRUGS (1)
  1. RENVELA [Suspect]
     Active Substance: SEVELAMER CARBONATE
     Indication: HYPERPHOSPHATAEMIA
     Dosage: RENVELA 800MG FOUR TABLETS THREE TIMES A DAY AND ONE TABLET TWO TIMES A DAY
     Route: 048
     Dates: start: 20150422, end: 20150514

REACTIONS (7)
  - Intestinal obstruction [Recovered/Resolved]
  - Hyperphosphataemia [Unknown]
  - Haemorrhage [Not Recovered/Not Resolved]
  - Functional gastrointestinal disorder [Recovered/Resolved]
  - Constipation [Not Recovered/Not Resolved]
  - Nausea [Unknown]
  - Abdominal pain [Recovered/Resolved]
